FAERS Safety Report 16259688 (Version 1)
Quarter: 2019Q2

REPORT INFORMATION
  Report Type: Spontaneous
  Country: US (occurrence: US)
  Receive Date: 20190326
  Receipt Date: 20190326
  Transmission Date: 20190711
  Serious: No
  Sender: FDA-Public Use
  Company Number: None

PATIENT
  Age: 29 Year
  Sex: Female
  Weight: 135.44 kg

DRUGS (1)
  1. ASPIRIN. [Suspect]
     Active Substance: ASPIRIN
     Dates: end: 20190205

REACTIONS (4)
  - Alanine aminotransferase increased [None]
  - Metastatic neoplasm [None]
  - Aspartate aminotransferase increased [None]
  - Hepatic lesion [None]

NARRATIVE: CASE EVENT DATE: 20190205
